FAERS Safety Report 6232660-7 (Version None)
Quarter: 2009Q2

REPORT INFORMATION
  Report Type: 
  Country: None (occurrence: None)
  Receive Date: 20090617
  Receipt Date: 20090605
  Transmission Date: 20091009
  Serious: Yes (Hospitalization, Other)
  Sender: FDA-Public Use
  Company Number: DE-PFIZER INC-2008152844

PATIENT

DRUGS (8)
  1. LYRICA [Suspect]
     Dosage: 75 MG, 2X/DAY
     Route: 048
     Dates: start: 20081101, end: 20081201
  2. BELOC ZOK [Concomitant]
     Dosage: UNK
  3. AMIODARONE [Concomitant]
     Dosage: 200 MG, 1X/DAY
  4. CORANGIN - SLOW RELEASE [Concomitant]
     Dosage: 40 MG, 2X/DAY
  5. PANTOPRAZOL [Concomitant]
     Dosage: UNK
  6. RUDOTEL [Concomitant]
     Dosage: 3 X 1/2 NOS
  7. VALORON N RETARD [Concomitant]
     Dosage: 2 X 1 NOS
  8. IBUPROFEN [Concomitant]

REACTIONS (2)
  - RETINAL DETACHMENT [None]
  - VISUAL ACUITY REDUCED [None]
